FAERS Safety Report 12837310 (Version 1)
Quarter: 2016Q4

REPORT INFORMATION
  Report Type: Spontaneous
  Country: FR (occurrence: FR)
  Receive Date: 20161011
  Receipt Date: 20161011
  Transmission Date: 20170207
  Serious: Yes (Life-Threatening, Hospitalization, Other)
  Sender: FDA-Public Use
  Company Number: FR-ASTRAZENECA-2016SF06457

PATIENT
  Age: 31416 Day
  Sex: Male

DRUGS (11)
  1. TAHOR [Suspect]
     Active Substance: ATORVASTATIN CALCIUM
     Route: 048
  2. TAZOCILLINE [Suspect]
     Active Substance: PIPERACILLIN SODIUM\TAZOBACTAM SODIUM
     Route: 040
     Dates: start: 20160805, end: 20160809
  3. KARDEGIC [Suspect]
     Active Substance: ASPIRIN LYSINE
     Route: 048
  4. ALDACTONE [Suspect]
     Active Substance: SPIRONOLACTONE
     Route: 048
  5. BISOCE [Concomitant]
     Active Substance: BISOPROLOL
     Route: 048
  6. PERINDOPRIL [Suspect]
     Active Substance: PERINDOPRIL
     Route: 048
  7. HEPARIN [Suspect]
     Active Substance: HEPARIN SODIUM
     Route: 040
     Dates: start: 201608
  8. INEXIUM [Suspect]
     Active Substance: ESOMEPRAZOLE
     Route: 048
  9. KARDEGIC [Suspect]
     Active Substance: ASPIRIN LYSINE
     Route: 048
     Dates: start: 20160817
  10. WARFARINE [Suspect]
     Active Substance: WARFARIN
     Route: 048
  11. AMIKACINE [Suspect]
     Active Substance: AMIKACIN
     Route: 040
     Dates: start: 20160805, end: 20160805

REACTIONS (14)
  - Acute kidney injury [Unknown]
  - Rhabdomyolysis [Unknown]
  - Embolism arterial [Unknown]
  - International normalised ratio increased [Unknown]
  - Renal tubular necrosis [Unknown]
  - Hypovolaemic shock [Unknown]
  - Confusional state [Unknown]
  - Muscle haemorrhage [Unknown]
  - Contusion [Unknown]
  - Hepatitis cholestatic [Recovering/Resolving]
  - Acute myocardial infarction [Unknown]
  - Gastric ulcer haemorrhage [Unknown]
  - Septic shock [Unknown]
  - Atrial fibrillation [Unknown]

NARRATIVE: CASE EVENT DATE: 20160602
